FAERS Safety Report 25961001 (Version 1)
Quarter: 2025Q4

REPORT INFORMATION
  Report Type: Spontaneous
  Country: GB (occurrence: GB)
  Receive Date: 20251027
  Receipt Date: 20251027
  Transmission Date: 20260118
  Serious: Yes (Hospitalization, Other)
  Sender: TEVA
  Company Number: None

PATIENT
  Sex: Female

DRUGS (1)
  1. ALENDRONIC ACID [Suspect]
     Active Substance: ALENDRONIC ACID
     Indication: Adverse drug reaction
     Route: 065
     Dates: end: 20251020

REACTIONS (1)
  - Atypical fracture [Recovered/Resolved with Sequelae]

NARRATIVE: CASE EVENT DATE: 20251019
